FAERS Safety Report 20102360 (Version 1)
Quarter: 2021Q4

REPORT INFORMATION
  Report Type: Spontaneous
  Country: US (occurrence: US)
  Receive Date: 20211123
  Receipt Date: 20211123
  Transmission Date: 20220303
  Serious: No
  Sender: FDA-Public Use
  Company Number: US-NOVOPROD-754513

PATIENT
  Sex: Male
  Weight: 105.23 kg

DRUGS (1)
  1. NOVOLOG MIX 70/30 [Suspect]
     Active Substance: INSULIN ASPART
     Indication: Diabetes mellitus
     Dosage: 30-35 IU TID
     Route: 058

REACTIONS (4)
  - Malaise [Not Recovered/Not Resolved]
  - Blood glucose increased [Unknown]
  - Intentional product use issue [Unknown]
  - Intentional dose omission [Not Recovered/Not Resolved]

NARRATIVE: CASE EVENT DATE: 20200901
